FAERS Safety Report 15654843 (Version 1)
Quarter: 2018Q4

REPORT INFORMATION
  Report Type: Spontaneous
  Country: US (occurrence: US)
  Receive Date: 20181126
  Receipt Date: 20181126
  Transmission Date: 20190205
  Serious: No
  Sender: FDA-Public Use
  Company Number: US-CIPLA LTD.-2018US22498

PATIENT

DRUGS (1)
  1. DICLOFENAC [Suspect]
     Active Substance: DICLOFENAC
     Indication: ARTHRITIS
     Dosage: UNK
     Route: 061
     Dates: start: 20181029, end: 20181029

REACTIONS (6)
  - Hypersensitivity [Unknown]
  - Nasal oedema [Unknown]
  - Product substitution issue [Unknown]
  - Product quality issue [Unknown]
  - Lacrimation increased [Unknown]
  - Flushing [Unknown]

NARRATIVE: CASE EVENT DATE: 20181029
